FAERS Safety Report 6144866-6 (Version None)
Quarter: 2009Q2

REPORT INFORMATION
  Report Type: 
  Country: None (occurrence: None)
  Receive Date: 20090406
  Receipt Date: 20090324
  Transmission Date: 20091009
  Serious: Yes (Hospitalization)
  Sender: FDA-Public Use
  Company Number: PHRM2006FR01797

PATIENT
  Sex: Male
  Weight: 100 kg

DRUGS (4)
  1. NISIS [Suspect]
     Indication: HYPERTENSION
     Dosage: 40 MG, QD
     Route: 048
     Dates: start: 20060206, end: 20060404
  2. DOLI RHUME [Suspect]
     Indication: RHINORRHOEA
     Dosage: UNK
     Route: 048
     Dates: start: 20060315, end: 20060330
  3. FERVEX [Concomitant]
     Route: 048
  4. CONTINUOUS POSITIVE AIRWAY PRESSURE [Concomitant]
     Indication: SLEEP APNOEA SYNDROME

REACTIONS (9)
  - ALANINE AMINOTRANSFERASE INCREASED [None]
  - ASTHENIA [None]
  - CHROMATURIA [None]
  - EOSINOPHIL COUNT INCREASED [None]
  - HAEMOGLOBIN DECREASED [None]
  - HAEMOLYTIC ANAEMIA [None]
  - JAUNDICE [None]
  - RETICULOCYTOSIS [None]
  - SERUM FERRITIN INCREASED [None]
